FAERS Safety Report 8855628 (Version 1)
Quarter: 2012Q4

REPORT INFORMATION
  Report Type: 
  Country: US (occurrence: US)
  Receive Date: 20121023
  Receipt Date: 20121023
  Transmission Date: 20130627
  Serious: No
  Sender: FDA-Public Use
  Company Number: US-AMGEN-USASP2012058886

PATIENT
  Age: 60 Year
  Sex: Female

DRUGS (3)
  1. ENBREL [Suspect]
     Indication: RHEUMATOID ARTHRITIS
     Dosage: 50 UNK, qwk
     Route: 058
     Dates: start: 20120901
  2. METHOTREXATE [Concomitant]
     Dosage: 10 UNK, UNK
     Dates: start: 20120703
  3. PREDNISONE [Concomitant]
     Dosage: 30 UNK, UNK
     Dates: start: 20120703

REACTIONS (1)
  - Drug ineffective [Not Recovered/Not Resolved]
